FAERS Safety Report 8145417-7 (Version None)
Quarter: 2012Q1

REPORT INFORMATION
  Report Type: 
  Country: None (occurrence: None)
  Receive Date: 20120217
  Receipt Date: 20120208
  Transmission Date: 20120608
  Serious: Yes (Other)
  Sender: FDA-Public Use
  Company Number: JP-PFIZER INC-2012026299

PATIENT
  Age: 70 Year
  Sex: Male

DRUGS (2)
  1. BOUIOUGITOU [Suspect]
     Dosage: 2 G, DAILY
     Route: 048
     Dates: start: 20120110, end: 20120120
  2. CELECOXIB [Suspect]
     Dosage: 200 MG, DAILY
     Route: 048
     Dates: start: 20120110, end: 20120120

REACTIONS (4)
  - PYREXIA [None]
  - FACE OEDEMA [None]
  - GENERALISED ERYTHEMA [None]
  - LIVER DISORDER [None]
